FAERS Safety Report 20726142 (Version 1)
Quarter: 2022Q2

REPORT INFORMATION
  Report Type: Spontaneous
  Country: US (occurrence: None)
  Receive Date: 20220419
  Receipt Date: 20220419
  Transmission Date: 20220720
  Serious: No
  Sender: FDA-Public Use
  Company Number: None

PATIENT
  Sex: Female

DRUGS (6)
  1. INGREZZA [Suspect]
     Active Substance: VALBENAZINE
  2. LATUDA [Concomitant]
     Active Substance: LURASIDONE HYDROCHLORIDE
  3. ROPINIROLE HYDROCHLORIDE [Concomitant]
     Active Substance: ROPINIROLE HYDROCHLORIDE
  4. Vraylar 6 mg [Concomitant]
  5. OMEPRAZOLE [Concomitant]
     Active Substance: OMEPRAZOLE
  6. Calcitriol 0.25 mg [Concomitant]

REACTIONS (3)
  - Muscular weakness [None]
  - Asthenia [None]
  - Loss of personal independence in daily activities [None]
